FAERS Safety Report 4783147-X (Version None)
Quarter: 2005Q3

REPORT INFORMATION
  Report Type: 
  Country: None (occurrence: None)
  Receive Date: 20050929
  Receipt Date: 20050706
  Transmission Date: 20060218
  Serious: Yes (Death, Other)
  Sender: FDA-Public Use
  Company Number: HK-ABBOTT-05P-075-0305497-00

PATIENT
  Age: 68 Year
  Sex: Male

DRUGS (11)
  1. CLARITHROMYCIN [Suspect]
     Indication: PNEUMONIA
     Route: 048
  2. CLARITHROMYCIN [Suspect]
     Route: 065
  3. COLCHICINE [Interacting]
     Indication: GOUTY ARTHRITIS
     Route: 048
  4. COLCHICINE [Interacting]
     Route: 048
  5. COLCHICINE [Interacting]
     Route: 065
  6. ADALAT [Concomitant]
     Indication: HYPERTENSION
  7. DEXTROPROPOXYPHENE HYDROCHLORIDE [Concomitant]
     Indication: ARTHRALGIA
     Dates: start: 19991019, end: 19991025
  8. SODIUM CHLORIDE [Concomitant]
     Indication: HYPONATRAEMIA
     Dates: start: 19991019, end: 19991025
  9. FAMOTIDINE [Concomitant]
     Indication: ANTACID THERAPY
  10. AMOXICILLIN AND CLAVULANATE POTASSIUM [Concomitant]
     Indication: PNEUMONIA
     Route: 042
     Dates: start: 19991012, end: 19991013
  11. PIPERACILLIN-TAZOBACTAM [Concomitant]
     Indication: PNEUMONIA
     Route: 042
     Dates: start: 19991013

REACTIONS (13)
  - AGRANULOCYTOSIS [None]
  - CHILLS [None]
  - DIARRHOEA [None]
  - DRUG INTERACTION [None]
  - DRUG TOXICITY [None]
  - HEPATIC FAILURE [None]
  - HYPOTENSION [None]
  - ILEUS PARALYTIC [None]
  - NAUSEA [None]
  - PANCYTOPENIA [None]
  - PYREXIA [None]
  - RENAL FAILURE ACUTE [None]
  - VOMITING [None]
